FAERS Safety Report 7328995-7 (Version None)
Quarter: 2011Q1

REPORT INFORMATION
  Report Type: 
  Country: None (occurrence: None)
  Receive Date: 20110303
  Receipt Date: 20110217
  Transmission Date: 20110831
  Serious: Yes (Other)
  Sender: FDA-Public Use
  Company Number: PHHY2011GB12771

PATIENT
  Age: 4 Year
  Sex: Male

DRUGS (2)
  1. METHOTREXATE [Suspect]
     Route: 064
  2. SULPHASALAZINE [Suspect]
     Route: 064

REACTIONS (7)
  - BODY HEIGHT BELOW NORMAL [None]
  - CRANIOSYNOSTOSIS [None]
  - VENTRICULAR SEPTAL DEFECT [None]
  - SMALL FOR DATES BABY [None]
  - DRUG EXPOSURE DURING PREGNANCY [None]
  - MATERNAL DRUGS AFFECTING FOETUS [None]
  - DEVELOPMENTAL DELAY [None]
